FAERS Safety Report 25961473 (Version 1)
Quarter: 2025Q4

REPORT INFORMATION
  Report Type: Report from Study
  Country: US (occurrence: US)
  Receive Date: 20251027
  Receipt Date: 20251027
  Transmission Date: 20260118
  Serious: Yes (Other)
  Sender: AUROBINDO
  Company Number: US-AUROBINDO-AUR-APL-2025-051350

PATIENT
  Age: 8 Month

DRUGS (2)
  1. POSACONAZOLE [Suspect]
     Active Substance: POSACONAZOLE
     Indication: Prophylaxis
     Dosage: 10 MILLIGRAM/KILOGRAM, ONCE A DAY
     Route: 042
  2. POSACONAZOLE [Suspect]
     Active Substance: POSACONAZOLE
     Dosage: 9.1 MILLIGRAM/KILOGRAM (ACHIEVED)
     Route: 042

REACTIONS (2)
  - Hyperbilirubinaemia [Unknown]
  - Hepatic function abnormal [Unknown]
